FAERS Safety Report 6863645-5 (Version None)
Quarter: 2010Q3

REPORT INFORMATION
  Report Type: 
  Country: None (occurrence: None)
  Receive Date: 20100721
  Receipt Date: 20080306
  Transmission Date: 20110219
  Serious: No
  Sender: FDA-Public Use
  Company Number: US-PFIZER INC-2008022819

PATIENT
  Sex: Female
  Weight: 54.545 kg

DRUGS (2)
  1. CHANTIX [Suspect]
     Dates: start: 20080303, end: 20080306
  2. ALL OTHER THERAPEUTIC PRODUCTS [Concomitant]
     Indication: HIV INFECTION

REACTIONS (1)
  - VOMITING [None]
